FAERS Safety Report 8117825 (Version 9)
Quarter: 2014Q2

REPORT INFORMATION
  Report Type: Report from Study
  Country: HU (occurrence: HU)
  Receive Date: 20110901
  Receipt Date: 20140512
  Transmission Date: 20141212
  Serious: Yes (Hospitalization, Other)
  Sender: FDA-Public Use
  Company Number: HU-AMGEN-HUNCT2011003518

PATIENT
  Age: 53 Year
  Sex: Female
  Weight: 62 kg

DRUGS (13)
  1. DENOSUMAB [Suspect]
     Indication: BREAST CANCER
     Dosage: UNK
     Route: 058
     Dates: start: 20101229
  2. DEXRAZOXANE HYDROCHLORIDE [Concomitant]
     Dosage: 822 MG, UNK
     Route: 042
     Dates: start: 20110105
  3. DOXORUBICIN [Concomitant]
     Dosage: 99 MG, UNK
     Route: 042
     Dates: start: 20110105
  4. ENDOXAN [Concomitant]
     Dosage: 987 MG, UNK
     Route: 042
     Dates: start: 20110105
  5. DIOVAN [Concomitant]
     Dosage: UNK
     Route: 048
     Dates: start: 2007
  6. EXFORGE [Concomitant]
     Dosage: UNK
     Dates: start: 2007
  7. BETALOC ZOK [Concomitant]
     Dosage: UNK
     Route: 048
     Dates: start: 2007, end: 20101215
  8. ATORVASTATIN [Concomitant]
     Dosage: UNK
     Route: 048
     Dates: start: 2007
  9. ASTRIX [Concomitant]
     Dosage: UNK
     Route: 048
     Dates: start: 2007
  10. CERUCAL [Concomitant]
     Dosage: UNK
     Route: 048
     Dates: start: 20101215
  11. TALLITON [Concomitant]
     Dosage: 25 MG, UNK
     Route: 048
     Dates: start: 20101215
  12. CONTROLOC [Concomitant]
     Dosage: 40 MG, UNK
     Route: 048
     Dates: start: 20101215
  13. IDEOS [Concomitant]
     Dosage: UNK
     Route: 048
     Dates: start: 20101229

REACTIONS (2)
  - Periostitis [Not Recovered/Not Resolved]
  - Infected seroma [Recovered/Resolved]
